FAERS Safety Report 14934474 (Version 1)
Quarter: 2018Q2

REPORT INFORMATION
  Report Type: Spontaneous
  Country: US (occurrence: US)
  Receive Date: 20180505
  Receipt Date: 20180505
  Transmission Date: 20180711
  Serious: No
  Sender: FDA-Public Use
  Company Number: None

PATIENT
  Age: 8 Year
  Sex: Male
  Weight: 58 kg

DRUGS (1)
  1. CEPHALEXIN FOR ORAL SUSPENSION 250MG/5ML (200ML WHEN MIXED) [Suspect]
     Active Substance: CEPHALEXIN
     Indication: STREPTOCOCCAL INFECTION
     Dosage: ?          QUANTITY:10 ML MILLILITRE(S);?
     Route: 048
     Dates: start: 20180426, end: 20180504

REACTIONS (2)
  - Incorrect dose administered [None]
  - Product reconstitution quality issue [None]

NARRATIVE: CASE EVENT DATE: 20180504
